FAERS Safety Report 12792741 (Version 1)
Quarter: 2016Q3

REPORT INFORMATION
  Report Type: Spontaneous
  Country: US (occurrence: US)
  Receive Date: 20160929
  Receipt Date: 20160929
  Transmission Date: 20161109
  Serious: No
  Sender: FDA-Public Use
  Company Number: US-JAZZ-2016-US-011660

PATIENT
  Sex: Female

DRUGS (16)
  1. XYREM [Suspect]
     Active Substance: SODIUM OXYBATE
     Indication: CATAPLEXY
     Dosage: 3 G, BID
     Route: 048
     Dates: start: 201606
  2. MELOXICAM. [Concomitant]
     Active Substance: MELOXICAM
  3. SPIRONOLACTONE. [Concomitant]
     Active Substance: SPIRONOLACTONE
  4. FLONASE ALLERGY RLF [Concomitant]
  5. VALTREX [Concomitant]
     Active Substance: VALACYCLOVIR HYDROCHLORIDE
  6. LYRICA [Concomitant]
     Active Substance: PREGABALIN
  7. ATIVAN [Concomitant]
     Active Substance: LORAZEPAM
  8. HALOPERIDOL. [Concomitant]
     Active Substance: HALOPERIDOL
  9. KLONOPIN [Concomitant]
     Active Substance: CLONAZEPAM
  10. XYREM [Suspect]
     Active Substance: SODIUM OXYBATE
     Indication: NARCOLEPSY
     Dosage: 2.5 G, BID
     Route: 048
     Dates: start: 201606, end: 201606
  11. LUNESTA [Concomitant]
     Active Substance: ESZOPICLONE
  12. ADVIL [Concomitant]
     Active Substance: IBUPROFEN
  13. PRILOSEC [Concomitant]
     Active Substance: OMEPRAZOLE MAGNESIUM
  14. VITAMIN D3 [Concomitant]
     Active Substance: CHOLECALCIFEROL
  15. TUMS [Concomitant]
     Active Substance: CALCIUM CARBONATE
  16. VITAMIN E [Concomitant]
     Active Substance: .ALPHA.-TOCOPHEROL

REACTIONS (2)
  - Pain [Unknown]
  - Muscular weakness [Not Recovered/Not Resolved]
